FAERS Safety Report 12859700 (Version 2)
Quarter: 2017Q1

REPORT INFORMATION
  Report Type: Spontaneous
  Country: IN (occurrence: IN)
  Receive Date: 20161018
  Receipt Date: 20170306
  Transmission Date: 20170428
  Serious: Yes (Hospitalization, Other)
  Sender: FDA-Public Use
  Company Number: IN-BAUSCH-BL-2016-025398

PATIENT
  Age: 28 Year
  Sex: Male
  Weight: 45 kg

DRUGS (1)
  1. DEXAMETHASONE. [Suspect]
     Active Substance: DEXAMETHASONE
     Indication: PEMPHIGUS
     Dosage: PULSE THERAPY; TOTAL 7 PULSES WERE GIVEN
     Route: 065

REACTIONS (1)
  - Osteonecrosis [Unknown]
